FAERS Safety Report 14553022 (Version 4)
Quarter: 2018Q2

REPORT INFORMATION
  Report Type: Spontaneous
  Country: DE (occurrence: DE)
  Receive Date: 20180220
  Receipt Date: 20180528
  Transmission Date: 20180711
  Serious: Yes (Hospitalization, Other)
  Sender: FDA-Public Use
  Company Number: PHHY2018DE000769

PATIENT
  Age: 43 Year
  Sex: Female

DRUGS (22)
  1. ARIPIPRAZOL [Suspect]
     Active Substance: ARIPIPRAZOLE
     Indication: MERYCISM
  2. VENLAFAXIN [Suspect]
     Active Substance: VENLAFAXINE HYDROCHLORIDE
     Dosage: 112.5 MG, QD
     Route: 065
  3. TRASTUZUMAB. [Suspect]
     Active Substance: TRASTUZUMAB
     Dosage: 2 X 4 CYCLES
     Route: 065
  4. LITHIUM CARBONATE. [Suspect]
     Active Substance: LITHIUM CARBONATE
     Indication: ANTIDEPRESSANT THERAPY
  5. GOSERELIN [Concomitant]
     Active Substance: GOSERELIN
     Indication: BREAST CANCER
  6. LITHIUM CARBONATE. [Suspect]
     Active Substance: LITHIUM CARBONATE
     Dosage: 675 MG, QD
     Route: 065
  7. QUETIAPINE. [Suspect]
     Active Substance: QUETIAPINE
     Indication: COGNITIVE DISORDER
     Dosage: 150 MG, QD
     Route: 048
  8. TRASTUZUMAB. [Suspect]
     Active Substance: TRASTUZUMAB
     Indication: BREAST CANCER
  9. ARIPIPRAZOL [Suspect]
     Active Substance: ARIPIPRAZOLE
     Indication: COGNITIVE DISORDER
  10. MIRTAZAPIN [Suspect]
     Active Substance: MIRTAZAPINE
     Indication: COGNITIVE DISORDER
  11. VENLAFAXIN [Suspect]
     Active Substance: VENLAFAXINE HYDROCHLORIDE
     Indication: ANTIDEPRESSANT THERAPY
  12. EPIRUBICIN [Suspect]
     Active Substance: EPIRUBICIN
     Indication: BREAST CANCER FEMALE
     Dosage: UNK
     Route: 065
  13. ARIPIPRAZOL [Suspect]
     Active Substance: ARIPIPRAZOLE
     Dosage: 5 MG, QD
     Route: 065
  14. ARIPIPRAZOL [Suspect]
     Active Substance: ARIPIPRAZOLE
     Indication: AGITATION
  15. GOSERELIN [Concomitant]
     Active Substance: GOSERELIN
     Dosage: UNK
     Route: 065
  16. VENLAFAXIN [Suspect]
     Active Substance: VENLAFAXINE HYDROCHLORIDE
     Indication: COGNITIVE DISORDER
  17. MIRTAZAPIN [Suspect]
     Active Substance: MIRTAZAPINE
     Indication: ANTIDEPRESSANT THERAPY
  18. DOCETAXEL. [Suspect]
     Active Substance: DOCETAXEL
     Indication: BREAST CANCER
     Dosage: 2 X 4 CYCLES
     Route: 065
  19. CYCLOPHOSPHAMIDE. [Suspect]
     Active Substance: CYCLOPHOSPHAMIDE
     Indication: BREAST CANCER FEMALE
     Dosage: (2X4 CYCLES)
     Route: 065
  20. MIRTAZAPIN [Suspect]
     Active Substance: MIRTAZAPINE
     Dosage: 15 MG, QD
     Route: 065
  21. LITHIUM CARBONATE. [Suspect]
     Active Substance: LITHIUM CARBONATE
     Indication: COGNITIVE DISORDER
  22. GOSERELIN [Concomitant]
     Active Substance: GOSERELIN
     Indication: BREAST CANCER FEMALE

REACTIONS (13)
  - Merycism [Not Recovered/Not Resolved]
  - Cerebral atrophy [Not Recovered/Not Resolved]
  - Cognitive disorder [Recovering/Resolving]
  - Memory impairment [Not Recovered/Not Resolved]
  - Arachnoid cyst [Not Recovered/Not Resolved]
  - Agitation [Not Recovered/Not Resolved]
  - Suicidal ideation [Not Recovered/Not Resolved]
  - Depressed mood [Not Recovered/Not Resolved]
  - Disturbance in attention [Not Recovered/Not Resolved]
  - Off label use [Recovering/Resolving]
  - Logorrhoea [Not Recovered/Not Resolved]
  - Mood swings [Recovering/Resolving]
  - Product use in unapproved indication [Unknown]
